FAERS Safety Report 12920382 (Version 1)
Quarter: 2016Q4

REPORT INFORMATION
  Report Type: Spontaneous
  Country: US (occurrence: US)
  Receive Date: 20161104
  Receipt Date: 20161104
  Transmission Date: 20170207
  Serious: Yes (Hospitalization)
  Sender: FDA-Public Use
  Company Number: None

PATIENT
  Age: 68 Year
  Sex: Male
  Weight: 183.4 kg

DRUGS (1)
  1. NIVOLUMAB [Suspect]
     Active Substance: NIVOLUMAB
     Indication: METASTATIC MALIGNANT MELANOMA
     Route: 042
     Dates: start: 20161013, end: 20161013

REACTIONS (6)
  - Dyspnoea [None]
  - Nausea [None]
  - Chills [None]
  - Hypertension [None]
  - Vomiting [None]
  - Respiratory depression [None]

NARRATIVE: CASE EVENT DATE: 20161013
